FAERS Safety Report 4538251-8 (Version None)
Quarter: 2004Q4

REPORT INFORMATION
  Report Type: 
  Country: None (occurrence: None)
  Receive Date: 20041221
  Receipt Date: 20041213
  Transmission Date: 20050328
  Serious: Yes (Life-Threatening)
  Sender: FDA-Public Use
  Company Number: 2004GB03078

PATIENT
  Age: 63 Year
  Sex: Male

DRUGS (4)
  1. CASODEX [Suspect]
     Indication: PROSTATE CANCER
     Dates: start: 20041025, end: 20041125
  2. PREDNISOLONE [Concomitant]
  3. VITAMIN B-12 [Concomitant]
  4. LANSOPRAZOLE [Concomitant]

REACTIONS (3)
  - ALCOHOLIC LIVER DISEASE [None]
  - HEPATITIS ACUTE [None]
  - RENAL FAILURE ACUTE [None]
